FAERS Safety Report 15703277 (Version 1)
Quarter: 2018Q4

REPORT INFORMATION
  Report Type: Spontaneous
  Country: DE (occurrence: DE)
  Receive Date: 20181210
  Receipt Date: 20181210
  Transmission Date: 20190205
  Serious: Yes (Hospitalization)
  Sender: FDA-Public Use
  Company Number: DE-ROCHE-2224359

PATIENT
  Sex: Male
  Weight: 3.57 kg

DRUGS (1)
  1. DIAZEPAM. [Suspect]
     Active Substance: DIAZEPAM
     Indication: PRODUCT USED FOR UNKNOWN INDICATION
     Route: 064

REACTIONS (3)
  - Hypothermia neonatal [Unknown]
  - Foetal exposure during pregnancy [Unknown]
  - Neonatal hypoxia [Unknown]

NARRATIVE: CASE EVENT DATE: 20090111
